FAERS Safety Report 20390935 (Version 1)
Quarter: 2022Q1

REPORT INFORMATION
  Report Type: Report from Study
  Country: NL (occurrence: NL)
  Receive Date: 20220128
  Receipt Date: 20220128
  Transmission Date: 20220423
  Serious: Yes (Other)
  Sender: FDA-Public Use
  Company Number: NL-Accord-195603

PATIENT
  Age: 11 Year
  Sex: Male
  Weight: 26 kg

DRUGS (4)
  1. TACROLIMUS [Interacting]
     Active Substance: TACROLIMUS
     Indication: Immunosuppression
     Dosage: DOSE INCREASE OF 1 MG/DAY
  2. EVEROLIMUS [Interacting]
     Active Substance: EVEROLIMUS
     Indication: Immunosuppression
     Dosage: DOSE INCREASE OF 1 MG/DAY
  3. PREDNISOLONE [Interacting]
     Active Substance: PREDNISOLONE
     Indication: Immunosuppression
  4. FLUCLOXACILLIN [Interacting]
     Active Substance: FLUCLOXACILLIN
     Indication: Bacterial pyelonephritis
     Dosage: 2 GRAM, QD
     Route: 048

REACTIONS (2)
  - Drug interaction [Unknown]
  - Drug level decreased [Recovered/Resolved]
